FAERS Safety Report 16545931 (Version 3)
Quarter: 2019Q3

REPORT INFORMATION
  Report Type: Report from Study
  Country: DE (occurrence: DE)
  Receive Date: 20190709
  Receipt Date: 20190903
  Transmission Date: 20191004
  Serious: Yes (Hospitalization)
  Sender: FDA-Public Use
  Company Number: DE-INCYTE CORPORATION-2019IN006708

PATIENT

DRUGS (14)
  1. INCB018424 [Suspect]
     Active Substance: RUXOLITINIB
     Dosage: 20 MG, BID
     Route: 048
     Dates: start: 20190613, end: 20190625
  2. RAMIPRIL. [Concomitant]
     Active Substance: RAMIPRIL
     Indication: PRODUCT USED FOR UNKNOWN INDICATION
     Dosage: 5 MG, UNK
     Route: 065
  3. TILIDIN [Concomitant]
     Active Substance: NALOXONE HYDROCHLORIDE\TILIDINE HYDROCHLORIDE
     Indication: PRODUCT USED FOR UNKNOWN INDICATION
     Dosage: 50/4 MG
     Route: 065
  4. VALPRO [Concomitant]
     Active Substance: VALPROATE SODIUM
     Indication: PRODUCT USED FOR UNKNOWN INDICATION
     Dosage: 1500 MG, UNK
     Route: 065
  5. INCB018424 [Suspect]
     Active Substance: RUXOLITINIB
     Dosage: 20 MG, BID
     Route: 048
     Dates: start: 20190702
  6. ALLOPURINOL. [Concomitant]
     Active Substance: ALLOPURINOL
     Indication: HYPERURICAEMIA
     Dosage: 300 MG, QD
     Route: 048
     Dates: start: 20160418
  7. THYRONAJOD [Concomitant]
     Active Substance: LEVOTHYROXINE SODIUM\POTASSIUM IODIDE
     Indication: PRODUCT USED FOR UNKNOWN INDICATION
     Dosage: 75 UG, UNK
     Route: 065
  8. LITALIR [Concomitant]
     Active Substance: HYDROXYUREA
     Indication: PRODUCT USED FOR UNKNOWN INDICATION
     Dosage: 500 MG, UNK
     Route: 065
  9. INCB018424 [Suspect]
     Active Substance: RUXOLITINIB
     Indication: PRIMARY MYELOFIBROSIS
     Dosage: 15 MG, BID
     Route: 048
     Dates: start: 20190401
  10. RESTEX [Concomitant]
     Active Substance: BENSERAZIDE\LEVODOPA
     Indication: PRODUCT USED FOR UNKNOWN INDICATION
     Dosage: 100/25 MG
     Route: 065
  11. PANTOPRAZOLE [Concomitant]
     Active Substance: PANTOPRAZOLE
     Indication: PRODUCT USED FOR UNKNOWN INDICATION
     Dosage: 40 MG, UNK
     Route: 065
  12. SPIRONOLACTONE. [Concomitant]
     Active Substance: SPIRONOLACTONE
     Indication: PRODUCT USED FOR UNKNOWN INDICATION
     Dosage: 50 MG, UNK
     Route: 065
  13. TOREM [Concomitant]
     Active Substance: TORSEMIDE
     Indication: PRODUCT USED FOR UNKNOWN INDICATION
     Dosage: 20 MG, UNK
     Route: 065
  14. LIXIANA [Concomitant]
     Active Substance: EDOXABAN TOSYLATE
     Indication: PRODUCT USED FOR UNKNOWN INDICATION
     Dosage: 60 MG, UNK
     Route: 065

REACTIONS (32)
  - Light chain analysis decreased [Unknown]
  - Mean cell haemoglobin decreased [Unknown]
  - Promyelocyte count increased [Unknown]
  - Neutrophil percentage decreased [Unknown]
  - Light chain analysis increased [Unknown]
  - Basophil percentage increased [Unknown]
  - Red blood cell count increased [Unknown]
  - Erythroblast count increased [Unknown]
  - Bone pain [Recovered/Resolved]
  - Agranulocytosis [Recovered/Resolved]
  - Blood alkaline phosphatase increased [Unknown]
  - Lymphocyte percentage decreased [Unknown]
  - Metamyelocyte percentage increased [Unknown]
  - Myelocyte percentage increased [Unknown]
  - Tonsillitis [Recovered/Resolved]
  - C-reactive protein increased [Unknown]
  - Red cell distribution width increased [Unknown]
  - International normalised ratio decreased [Unknown]
  - Pyrexia [Recovered/Resolved]
  - Band neutrophil percentage increased [Unknown]
  - Haematocrit increased [Recovered/Resolved]
  - N-terminal prohormone brain natriuretic peptide increased [Unknown]
  - Blood albumin decreased [Unknown]
  - Blood immunoglobulin G increased [Unknown]
  - Monocyte percentage decreased [Unknown]
  - Abdominal pain upper [Recovered/Resolved]
  - Weight decreased [Recovered/Resolved]
  - Back pain [Unknown]
  - Gamma-glutamyltransferase increased [Unknown]
  - Mean cell haemoglobin concentration decreased [Unknown]
  - Mean cell volume decreased [Unknown]
  - Blood uric acid increased [Unknown]

NARRATIVE: CASE EVENT DATE: 20190401
